FAERS Safety Report 5126122-8 (Version None)
Quarter: 2006Q4

REPORT INFORMATION
  Report Type: 
  Country: None (occurrence: None)
  Receive Date: 20061012
  Receipt Date: 20061004
  Transmission Date: 20070319
  Serious: Yes (Hospitalization, Other)
  Sender: FDA-Public Use
  Company Number: US-JNJFOC-20060601661

PATIENT
  Sex: Female
  Weight: 58.97 kg

DRUGS (2)
  1. ORTHO EVRA [Suspect]
     Indication: DRUG USE FOR UNKNOWN INDICATION
     Route: 062
  2. MAXALT [Concomitant]
     Indication: MIGRAINE

REACTIONS (2)
  - CEREBROVASCULAR ACCIDENT [None]
  - URINARY TRACT INFECTION [None]
